FAERS Safety Report 6699258-8 (Version None)
Quarter: 2010Q2

REPORT INFORMATION
  Report Type: 
  Country: None (occurrence: None)
  Receive Date: 20100427
  Receipt Date: 20100413
  Transmission Date: 20101027
  Serious: Yes (Hospitalization, Other)
  Sender: FDA-Public Use
  Company Number: US-ELI_LILLY_AND_COMPANY-US201004003934

PATIENT
  Sex: Female

DRUGS (4)
  1. FORTEO [Suspect]
     Indication: OSTEOPOROSIS
     Dosage: 20 UG, DAILY (1/D)
     Dates: start: 20100319, end: 20100401
  2. FORTEO [Suspect]
     Dosage: 20 UG, DAILY (1/D)
     Dates: start: 20100407
  3. VITAMINS [Concomitant]
  4. CALCIUM [Concomitant]

REACTIONS (4)
  - BLOOD POTASSIUM DECREASED [None]
  - DIARRHOEA [None]
  - GASTROENTERITIS VIRAL [None]
  - LOSS OF CONSCIOUSNESS [None]
